FAERS Safety Report 12298478 (Version 2)
Quarter: 2016Q2

REPORT INFORMATION
  Report Type: Report from Study
  Country: US (occurrence: US)
  Receive Date: 20160424
  Receipt Date: 20160428
  Transmission Date: 20160815
  Serious: No
  Sender: FDA-Public Use
  Company Number: US-AMGEN-USASL2016050373

PATIENT
  Age: 61 Year
  Sex: Female

DRUGS (1)
  1. ENBREL [Suspect]
     Active Substance: ETANERCEPT
     Indication: PRODUCT USED FOR UNKNOWN INDICATION
     Dosage: 25 MG, UNK
     Route: 065
     Dates: start: 2001

REACTIONS (9)
  - Product container seal issue [Unknown]
  - Drug dose omission [Unknown]
  - Needle issue [None]
  - Product outer packaging issue [None]
  - Fall [Unknown]
  - Depression [Unknown]
  - Device connection issue [None]
  - Concussion [Unknown]
  - Device issue [Unknown]

NARRATIVE: CASE EVENT DATE: 2005
